FAERS Safety Report 9393202 (Version 2)
Quarter: 2013Q3

REPORT INFORMATION
  Report Type: Spontaneous
  Country: US (occurrence: US)
  Receive Date: 20130710
  Receipt Date: 20130731
  Transmission Date: 20140515
  Serious: No
  Sender: FDA-Public Use
  Company Number: US-009507513-1307USA000165

PATIENT
  Sex: Female

DRUGS (1)
  1. ASMANEX TWISTHALER [Suspect]
     Dosage: ONE INHALATION TWICE A DAY
     Route: 055
     Dates: start: 20130612

REACTIONS (3)
  - Drug dose omission [Unknown]
  - Product container issue [Unknown]
  - No adverse event [Unknown]
